FAERS Safety Report 10200132 (Version 1)
Quarter: 2014Q2

REPORT INFORMATION
  Report Type: Spontaneous
  Country: US (occurrence: US)
  Receive Date: 20140527
  Receipt Date: 20140527
  Transmission Date: 20141212
  Serious: Yes (Hospitalization)
  Sender: FDA-Public Use
  Company Number: US-TEVA-483348USA

PATIENT
  Age: 46 Year
  Sex: Male

DRUGS (1)
  1. LEVOFLOXACIN TABLETS, 250 MG, 500 MG AND 750 MG [Suspect]
     Indication: PROSTATITIS
     Route: 048

REACTIONS (4)
  - Osmotic demyelination syndrome [Unknown]
  - Unresponsive to stimuli [Unknown]
  - Quadriparesis [Unknown]
  - Hypoglycaemia [Unknown]
